FAERS Safety Report 8538521-2 (Version None)
Quarter: 2012Q3

REPORT INFORMATION
  Report Type: 
  Country: None (occurrence: None)
  Receive Date: 20120718
  Receipt Date: 20120718
  Transmission Date: 20120928
  Serious: Yes (Other)
  Sender: FDA-Public Use
  Company Number: None

PATIENT
  Sex: Female
  Weight: 57.6068 kg

DRUGS (1)
  1. RAMIPRIL [Suspect]
     Indication: HYPERTENSION
     Dosage: 10 MG ONCE DAILY ORAL
     Route: 048
     Dates: start: 20120301, end: 20120507

REACTIONS (7)
  - RESTLESSNESS [None]
  - SALIVARY HYPERSECRETION [None]
  - INSOMNIA [None]
  - THROAT IRRITATION [None]
  - COUGH [None]
  - CHOKING [None]
  - INCREASED UPPER AIRWAY SECRETION [None]
